FAERS Safety Report 5253999-8 (Version None)
Quarter: 2007Q1

REPORT INFORMATION
  Report Type: 
  Country: None (occurrence: None)
  Receive Date: 20070302
  Receipt Date: 20070221
  Transmission Date: 20070707
  Serious: Yes (Other)
  Sender: FDA-Public Use
  Company Number: GB-JNJFOC-20070205904

PATIENT
  Age: 40 Year
  Sex: Female

DRUGS (1)
  1. TOPAMAX [Suspect]
     Indication: DRUG THERAPY
     Route: 065

REACTIONS (1)
  - NEUTROPENIA [None]
